FAERS Safety Report 9784148 (Version 1)
Quarter: 2013Q4

REPORT INFORMATION
  Report Type: Spontaneous
  Country: CA (occurrence: CA)
  Receive Date: 20131226
  Receipt Date: 20131226
  Transmission Date: 20140711
  Serious: Yes (Other)
  Sender: FDA-Public Use
  Company Number: CA-TEVA-453045USA

PATIENT
  Age: 2 Decade
  Sex: Female

DRUGS (4)
  1. VINCRISTINE [Suspect]
  2. CARBOPLATIN [Suspect]
  3. ETOPOSIDE [Suspect]
  4. IFOSFAMIDE [Suspect]

REACTIONS (1)
  - Metastasis [Unknown]
